FAERS Safety Report 11497752 (Version 1)
Quarter: 2015Q3

REPORT INFORMATION
  Report Type: Spontaneous
  Country: US (occurrence: US)
  Receive Date: 20150911
  Receipt Date: 20150911
  Transmission Date: 20151125
  Serious: No
  Sender: FDA-Public Use
  Company Number: US-ASTRAZENECA-2015SE85066

PATIENT
  Age: 48 Year
  Sex: Female
  Weight: 104.3 kg

DRUGS (7)
  1. AMLODIPINE [Concomitant]
     Active Substance: AMLODIPINE BESYLATE
  2. ATENOLOL. [Suspect]
     Active Substance: ATENOLOL
     Route: 065
  3. BYDUREON [Suspect]
     Active Substance: EXENATIDE
     Indication: TYPE 2 DIABETES MELLITUS
     Route: 058
  4. PROTONIX [Concomitant]
     Active Substance: PANTOPRAZOLE SODIUM
  5. LISINOPRIL. [Suspect]
     Active Substance: LISINOPRIL
     Route: 048
  6. LEVEMIR [Concomitant]
     Active Substance: INSULIN DETEMIR
     Indication: TYPE 2 DIABETES MELLITUS
     Route: 058
  7. DEPAKOTE [Concomitant]
     Active Substance: DIVALPROEX SODIUM

REACTIONS (6)
  - Arthralgia [Unknown]
  - Fall [Unknown]
  - Injection site pain [Unknown]
  - Intentional product misuse [Unknown]
  - Injection site pruritus [Unknown]
  - Injection site nodule [Unknown]

NARRATIVE: CASE EVENT DATE: 2015
